FAERS Safety Report 14860176 (Version 3)
Quarter: 2018Q2

REPORT INFORMATION
  Report Type: Spontaneous
  Country: US (occurrence: US)
  Receive Date: 20180508
  Receipt Date: 20180620
  Transmission Date: 20180711
  Serious: No
  Sender: FDA-Public Use
  Company Number: US-PFIZER INC-2018185973

PATIENT
  Age: 77 Year
  Sex: Female
  Weight: 64 kg

DRUGS (2)
  1. ADVIL [Suspect]
     Active Substance: IBUPROFEN
     Indication: ARTHRALGIA
     Dosage: 200 MG, UNK
     Dates: start: 201803, end: 201804
  2. ADVIL [Suspect]
     Active Substance: IBUPROFEN
     Dosage: 400 MG, DAILY
     Dates: start: 201803, end: 201804

REACTIONS (4)
  - Drug ineffective [Not Recovered/Not Resolved]
  - Poor quality drug administered [Unknown]
  - Product colour issue [Unknown]
  - Product size issue [Unknown]

NARRATIVE: CASE EVENT DATE: 201803
